FAERS Safety Report 9590686 (Version 1)
Quarter: 2013Q4

REPORT INFORMATION
  Report Type: Spontaneous
  Country: US (occurrence: US)
  Receive Date: 20131003
  Receipt Date: 20131003
  Transmission Date: 20140711
  Serious: No
  Sender: FDA-Public Use
  Company Number: US-AMGEN-USASP2012078554

PATIENT
  Sex: Male
  Weight: 121.54 kg

DRUGS (9)
  1. ENBREL [Suspect]
     Indication: PSORIASIS
     Dosage: 50 MG/ML, QWK
     Route: 058
  2. ENBREL [Suspect]
     Indication: PSORIATIC ARTHROPATHY
  3. MICARDIS [Concomitant]
     Dosage: 20 MG, UNK
  4. HYDROCHLOROTH [Concomitant]
     Dosage: 12.5 MG, UNK
  5. NEXIUM                             /01479302/ [Concomitant]
     Dosage: 20 MG, UNK
  6. LORCET                             /00607101/ [Concomitant]
     Dosage: UNK,10/650
  7. METHOTREXATE [Concomitant]
     Dosage: 2.5 MG, UNK
  8. TRAZODONE                          /00447702/ [Concomitant]
     Dosage: 50 MG, UNK
  9. MELOXICAM [Concomitant]
     Dosage: 7.5 MG, UNK

REACTIONS (3)
  - Injection site pain [Unknown]
  - Injection site haemorrhage [Unknown]
  - Injection site bruising [Unknown]
